FAERS Safety Report 7024064-4 (Version None)
Quarter: 2010Q4

REPORT INFORMATION
  Report Type: 
  Country: None (occurrence: None)
  Receive Date: 20101001
  Receipt Date: 20100922
  Transmission Date: 20110411
  Serious: Yes (Other)
  Sender: FDA-Public Use
  Company Number: GR-AMGEN-QUU436554

PATIENT
  Age: 67 Year
  Sex: Female
  Weight: 75.6 kg

DRUGS (3)
  1. MIMPARA [Suspect]
     Indication: HYPERPARATHYROIDISM PRIMARY
     Route: 048
     Dates: start: 20100517, end: 20100816
  2. LEXOTANIL [Concomitant]
  3. T4 [Concomitant]

REACTIONS (3)
  - ALOPECIA [None]
  - DERMATITIS [None]
  - URINE COLOUR ABNORMAL [None]
